FAERS Safety Report 14544389 (Version 1)
Quarter: 2018Q1

REPORT INFORMATION
  Report Type: Spontaneous
  Country: US (occurrence: US)
  Receive Date: 20180216
  Receipt Date: 20180216
  Transmission Date: 20180509
  Serious: Yes (Other)
  Sender: FDA-Public Use
  Company Number: US-JNJFOC-20180207053

PATIENT

DRUGS (1)
  1. XARELTO [Suspect]
     Active Substance: RIVAROXABAN
     Indication: PRODUCT USED FOR UNKNOWN INDICATION
     Route: 048
     Dates: start: 20140318, end: 20140325

REACTIONS (3)
  - Haematuria [Unknown]
  - Haemorrhage [Unknown]
  - Haematoma [Unknown]

NARRATIVE: CASE EVENT DATE: 20140325
